FAERS Safety Report 4400736-2 (Version None)
Quarter: 2004Q3

REPORT INFORMATION
  Report Type: 
  Country: None (occurrence: None)
  Receive Date: 20040714
  Receipt Date: 20040630
  Transmission Date: 20050211
  Serious: Yes (Other)
  Sender: FDA-Public Use
  Company Number: 2004-BP-05271BP

PATIENT
  Age: 89 Year
  Sex: Male

DRUGS (6)
  1. FLOMAX [Suspect]
     Indication: BENIGN PROSTATIC HYPERPLASIA
     Dosage: 0.4 MG (0.4 MG, 1 OD), PO
     Route: 048
     Dates: end: 20031201
  2. ATENOLOL [Concomitant]
  3. DIPYRIDAMOLE [Concomitant]
  4. ASPIRIN [Concomitant]
  5. LASIX [Concomitant]
  6. PHENERGAN [Concomitant]

REACTIONS (2)
  - DYSPHAGIA [None]
  - THROAT CANCER [None]
